FAERS Safety Report 17146500 (Version 1)
Quarter: 2019Q4

REPORT INFORMATION
  Report Type: Report from Study
  Country: None (occurrence: US)
  Receive Date: 20191212
  Receipt Date: 20191212
  Transmission Date: 20200122
  Serious: Yes (Hospitalization)
  Sender: FDA-Public Use
  Company Number: US-ABBVIE-19P-163-3177250-00

PATIENT
  Sex: Male

DRUGS (1)
  1. IMBRUVICA [Suspect]
     Active Substance: IBRUTINIB
     Indication: LYMPHOCYTIC LEUKAEMIA
     Route: 048
     Dates: start: 20191121

REACTIONS (5)
  - Abdominal discomfort [Unknown]
  - Fatigue [Unknown]
  - Pain [Recovering/Resolving]
  - Feeling abnormal [Unknown]
  - Asthenia [Unknown]
